FAERS Safety Report 18480684 (Version 8)
Quarter: 2021Q4

REPORT INFORMATION
  Report Type: Report from Study
  Country: US (occurrence: US)
  Receive Date: 20201109
  Receipt Date: 20211207
  Transmission Date: 20220304
  Serious: Yes (Hospitalization, Other)
  Sender: FDA-Public Use
  Company Number: US-NOVARTISPH-NVSC2020US295573

PATIENT
  Age: 51 Year
  Sex: Male
  Weight: 77.098 kg

DRUGS (8)
  1. TREPROSTINIL [Suspect]
     Active Substance: TREPROSTINIL
     Indication: Pulmonary arterial hypertension
     Dosage: 96 NG/KG/MIN, CONT
     Route: 042
     Dates: start: 20201026
  2. TREPROSTINIL [Suspect]
     Active Substance: TREPROSTINIL
     Dosage: 96 NG/KG/MIN, CONT
     Route: 065
  3. TREPROSTINIL [Suspect]
     Active Substance: TREPROSTINIL
     Dosage: 96 NG/KG/MIN, CONT
     Route: 042
  4. TREPROSTINIL [Suspect]
     Active Substance: TREPROSTINIL
     Dosage: 120 NG/KG/MIN, CONT
     Route: 042
  5. TREPROSTINIL [Suspect]
     Active Substance: TREPROSTINIL
     Dosage: 126 NG/KG/MIN, CONT
     Route: 065
  6. TADALAFIL [Concomitant]
     Active Substance: TADALAFIL
     Indication: Product used for unknown indication
     Dosage: UNK
     Route: 065
  7. OPSUMIT [Concomitant]
     Active Substance: MACITENTAN
     Indication: Product used for unknown indication
     Dosage: UNK
     Route: 065
  8. ORENITRAM [Concomitant]
     Active Substance: TREPROSTINIL
     Indication: Product used for unknown indication
     Dosage: UNK
     Route: 065

REACTIONS (11)
  - Fluid retention [Unknown]
  - Heart rate increased [Unknown]
  - Dehydration [Unknown]
  - Syncope [Unknown]
  - Choking [Unknown]
  - Blister [Unknown]
  - Pruritus [Unknown]
  - Rash [Unknown]
  - Catheter site pruritus [Unknown]
  - Catheter site erythema [Unknown]
  - Catheter site irritation [Unknown]

NARRATIVE: CASE EVENT DATE: 20210507
